FAERS Safety Report 8282264-X (Version None)
Quarter: 2012Q2

REPORT INFORMATION
  Report Type: 
  Country: None (occurrence: None)
  Receive Date: 20120413
  Receipt Date: 20120403
  Transmission Date: 20120825
  Serious: Yes (Other)
  Sender: FDA-Public Use
  Company Number: US-JNJFOC-20120401990

PATIENT
  Sex: Female
  Weight: 85.28 kg

DRUGS (16)
  1. ADVAIR DISKUS 100/50 [Concomitant]
     Indication: ASTHMA
  2. LEVOTHYROXINE SODIUM [Concomitant]
     Indication: HYPOTHYROIDISM
     Route: 048
  3. COQ10 [Concomitant]
     Indication: MUSCLE DISORDER
     Route: 048
  4. METFORMIN HCL [Concomitant]
     Indication: DIABETES MELLITUS
     Route: 048
     Dates: start: 20120222
  5. MONOPRIL [Concomitant]
     Indication: HYPERTENSION
     Route: 048
     Dates: start: 20120315
  6. DIGOXIN [Suspect]
     Indication: ATRIAL FIBRILLATION
     Route: 048
     Dates: start: 20120315
  7. HYDROCHLOROTHIAZIDE [Concomitant]
     Indication: HYPERTENSION
     Route: 048
  8. ASPIRIN [Concomitant]
     Indication: PRODUCT USED FOR UNKNOWN INDICATION
     Route: 048
  9. PLAVIX [Concomitant]
     Indication: TRANSIENT ISCHAEMIC ATTACK
     Route: 048
     Dates: end: 20120315
  10. XARELTO [Suspect]
     Indication: ATRIAL FIBRILLATION
     Route: 048
     Dates: start: 20120315
  11. MONOPRIL [Concomitant]
     Route: 048
     Dates: end: 20120315
  12. VYTORIN [Concomitant]
     Indication: BLOOD CHOLESTEROL INCREASED
     Dates: end: 20120101
  13. RESTASIS [Concomitant]
     Indication: DRY EYE
     Route: 047
     Dates: start: 20120315
  14. CARDIZEM [Concomitant]
     Indication: HYPERTENSION
     Route: 048
     Dates: end: 20120315
  15. LIVALO [Concomitant]
     Indication: BLOOD CHOLESTEROL INCREASED
     Dates: start: 20120101
  16. CARDIZEM [Concomitant]
     Route: 048
     Dates: start: 20120315

REACTIONS (4)
  - ASTHENIA [None]
  - NAUSEA [None]
  - APATHY [None]
  - DIZZINESS [None]
